FAERS Safety Report 20279697 (Version 1)
Quarter: 2022Q1

REPORT INFORMATION
  Report Type: Spontaneous
  Country: UZ (occurrence: UZ)
  Receive Date: 20220103
  Receipt Date: 20220103
  Transmission Date: 20220424
  Serious: Yes (Death)
  Sender: FDA-Public Use
  Company Number: UZ-NOVARTISPH-NVSC2021UZ300714

PATIENT
  Sex: Female

DRUGS (1)
  1. GLIVEC [Suspect]
     Active Substance: IMATINIB MESYLATE
     Indication: Chronic myeloid leukaemia
     Dosage: 600 MG, (6 X 100 MG TABLETS)
     Route: 065

REACTIONS (2)
  - Chronic myeloid leukaemia [Fatal]
  - Oncologic complication [Fatal]
